FAERS Safety Report 25089007 (Version 3)
Quarter: 2025Q2

REPORT INFORMATION
  Report Type: Spontaneous
  Country: US (occurrence: US)
  Receive Date: 20250318
  Receipt Date: 20250422
  Transmission Date: 20250716
  Serious: Yes (Hospitalization, Other)
  Sender: PFIZER
  Company Number: US-PFIZER INC-PV202500030148

PATIENT
  Age: 33 Year
  Sex: Female
  Weight: 39.1 kg

DRUGS (46)
  1. DOXORUBICIN HYDROCHLORIDE [Suspect]
     Active Substance: DOXORUBICIN HYDROCHLORIDE
  2. BLEOMYCIN SULFATE [Suspect]
     Active Substance: BLEOMYCIN SULFATE
  3. DACARBAZINE [Suspect]
     Active Substance: DACARBAZINE
  4. JAKAFI [Suspect]
     Active Substance: RUXOLITINIB
     Dosage: 10 MG, 2X/DAY
     Route: 048
  5. JAKAFI [Suspect]
     Active Substance: RUXOLITINIB
     Dosage: 5 MG, 2X/DAY
     Route: 048
  6. JAKAFI [Suspect]
     Active Substance: RUXOLITINIB
     Dosage: 5 MILLIGRAM, BID (TWO TIMES IN A DAY)
     Route: 048
     Dates: start: 20250313
  7. VINBLASTINE SULFATE [Suspect]
     Active Substance: VINBLASTINE SULFATE
  8. AXATILIMAB [Suspect]
     Active Substance: AXATILIMAB
     Indication: Graft versus host disease
     Route: 042
     Dates: start: 20241223, end: 20241223
  9. AXATILIMAB [Suspect]
     Active Substance: AXATILIMAB
     Route: 042
     Dates: start: 20241223, end: 20250127
  10. AXATILIMAB [Suspect]
     Active Substance: AXATILIMAB
     Route: 042
     Dates: start: 20241223, end: 20250127
  11. AXATILIMAB [Suspect]
     Active Substance: AXATILIMAB
     Route: 042
     Dates: start: 20241223, end: 20250127
  12. AXATILIMAB [Suspect]
     Active Substance: AXATILIMAB
     Route: 042
     Dates: start: 20241223, end: 20250210
  13. AXATILIMAB [Suspect]
     Active Substance: AXATILIMAB
     Route: 042
     Dates: start: 20241223, end: 20250310
  14. ZOVIRAX [Concomitant]
     Active Substance: ACYCLOVIR
     Dates: start: 20241118
  15. ACETAMINOPHEN [Concomitant]
     Active Substance: ACETAMINOPHEN
  16. ACTIGALL [Concomitant]
     Active Substance: URSODIOL
  17. AQUAPHOR [Concomitant]
     Active Substance: PETROLATUM
  18. ATIVAN [Concomitant]
     Active Substance: LORAZEPAM
  19. BACTRIM DS [Concomitant]
     Active Substance: SULFAMETHOXAZOLE\TRIMETHOPRIM
  20. BECLOMETHASONE DIPROPIONATE [Concomitant]
     Active Substance: BECLOMETHASONE DIPROPIONATE
  21. BENZONATATE [Concomitant]
     Active Substance: BENZONATATE
  22. CETYLPYRIDINIUM CHLORIDE [Concomitant]
     Active Substance: CETYLPYRIDINIUM CHLORIDE
  23. BUDESONIDE [Concomitant]
     Active Substance: BUDESONIDE
     Dates: start: 20240826
  24. CRESEMBA [Concomitant]
     Active Substance: ISAVUCONAZONIUM SULFATE
     Dates: start: 20241022
  25. DELTASONE [Concomitant]
     Active Substance: PREDNISONE
     Dates: start: 20241216
  26. DEXTROMETHORPHAN HYDROBROMIDE AND GUAIFENESIN [Concomitant]
     Active Substance: DEXTROMETHORPHAN HYDROBROMIDE\GUAIFENESIN
  27. DRISDOL [Concomitant]
     Active Substance: ERGOCALCIFEROL
  28. IMODIUM [Concomitant]
     Active Substance: LOPERAMIDE HYDROCHLORIDE
  29. ISAVUCONAZONIUM SULFATE [Concomitant]
     Active Substance: ISAVUCONAZONIUM SULFATE
  30. KLOR-CON M10 [Concomitant]
     Active Substance: POTASSIUM CHLORIDE
  31. MARINOL [Concomitant]
     Active Substance: DRONABINOL
  32. MG PLUS PROTEIN [Concomitant]
  33. NARCAN [Concomitant]
     Active Substance: NALOXONE HYDROCHLORIDE
  34. OPIUM TINCTURE [Concomitant]
     Active Substance: MORPHINE
  35. PREVYMIS [Concomitant]
     Active Substance: LETERMOVIR
     Dates: start: 20240801
  36. PROGRAF [Concomitant]
     Active Substance: TACROLIMUS
  37. PROMACTA [Concomitant]
     Active Substance: ELTROMBOPAG OLAMINE
     Dates: start: 20250204
  38. PROTONIX [Concomitant]
     Active Substance: PANTOPRAZOLE SODIUM
     Dates: start: 20250226
  39. REFRESH TEARS [Concomitant]
     Active Substance: CARBOXYMETHYLCELLULOSE SODIUM
  40. REMERON [Concomitant]
     Active Substance: MIRTAZAPINE
  41. VALCYTE [Concomitant]
     Active Substance: VALGANCICLOVIR HYDROCHLORIDE
  42. ZYPREXA [Concomitant]
     Active Substance: OLANZAPINE
  43. LOMOTIL [Concomitant]
     Active Substance: ATROPINE SULFATE\DIPHENOXYLATE HYDROCHLORIDE
  44. ROZEREM [Concomitant]
     Active Substance: RAMELTEON
     Dates: start: 20250303
  45. LEVAQUIN [Concomitant]
     Active Substance: LEVOFLOXACIN
     Dates: start: 20250304
  46. KYTRIL [Concomitant]
     Active Substance: GRANISETRON HYDROCHLORIDE
     Dates: start: 20250313

REACTIONS (37)
  - Abdominal pain [Recovered/Resolved]
  - Palpitations [Not Recovered/Not Resolved]
  - Pneumonia bacterial [Unknown]
  - Enterobacter bacteraemia [Recovered/Resolved]
  - Sepsis [Recovered/Resolved]
  - Influenza [Not Recovered/Not Resolved]
  - Tachycardia [Unknown]
  - Pneumonia fungal [Unknown]
  - Coronavirus infection [Unknown]
  - Hodgkin^s disease refractory [Recovering/Resolving]
  - Chronic graft versus host disease [Unknown]
  - Graft versus host disease in liver [Recovered/Resolved]
  - Immunodeficiency [Unknown]
  - Renal atrophy [Unknown]
  - Pneumonitis [Recovered/Resolved]
  - Major depression [Unknown]
  - Immunosuppression [Unknown]
  - Herpes simplex viraemia [Unknown]
  - Thrombocytopenia [Unknown]
  - Pyrexia [Unknown]
  - Muscle disorder [Unknown]
  - Generalised anxiety disorder [Unknown]
  - Malnutrition [Unknown]
  - Rash [Unknown]
  - Respiratory tract infection viral [Unknown]
  - Viral upper respiratory tract infection [Unknown]
  - Cough [Recovering/Resolving]
  - Anaemia [Unknown]
  - Gastrointestinal wall thickening [Unknown]
  - Intestinal dilatation [Unknown]
  - Lung opacity [Unknown]
  - Renal disorder [Unknown]
  - Enteritis [Unknown]
  - Dry eye [Unknown]
  - Dry skin [Unknown]
  - Insomnia [Unknown]
  - Pyrexia [Unknown]

NARRATIVE: CASE EVENT DATE: 20241106
